FAERS Safety Report 12903536 (Version 2)
Quarter: 2016Q4

REPORT INFORMATION
  Report Type: Spontaneous
  Country: IT (occurrence: IT)
  Receive Date: 20161102
  Receipt Date: 20161117
  Transmission Date: 20170207
  Serious: Yes (Hospitalization)
  Sender: FDA-Public Use
  Company Number: IT-PFIZER INC-2016509014

PATIENT
  Age: 27 Year
  Sex: Male

DRUGS (4)
  1. TRIAZOLAM. [Suspect]
     Active Substance: TRIAZOLAM
     Dosage: 5 MG, SINGLE
     Route: 048
     Dates: start: 20160425, end: 20160425
  2. ALPRAZOLAM. [Suspect]
     Active Substance: ALPRAZOLAM
     Dosage: 10 MG, SINGLE
     Route: 048
     Dates: start: 20160425, end: 20160425
  3. ESILGAN [Suspect]
     Active Substance: ESTAZOLAM
     Dosage: 60 MG, DAILY
     Route: 048
     Dates: start: 20160425, end: 20160425
  4. EFFEXOR XR [Suspect]
     Active Substance: VENLAFAXINE HYDROCHLORIDE
     Dosage: 525 MG, SINGLE
     Route: 048
     Dates: start: 20160425, end: 20160425

REACTIONS (4)
  - Drug abuse [Recovering/Resolving]
  - Loss of consciousness [Recovering/Resolving]
  - Suicidal ideation [Recovering/Resolving]
  - Overdose [Recovering/Resolving]

NARRATIVE: CASE EVENT DATE: 20160425
